FAERS Safety Report 7035152-0 (Version None)
Quarter: 2010Q4

REPORT INFORMATION
  Report Type: 
  Country: None (occurrence: None)
  Receive Date: 20101008
  Receipt Date: 20101001
  Transmission Date: 20110411
  Serious: Yes (Other)
  Sender: FDA-Public Use
  Company Number: US-US-EMD SERONO, INC.-7014284

PATIENT
  Sex: Female
  Weight: 70 kg

DRUGS (22)
  1. REBIF [Suspect]
     Indication: PRODUCT USED FOR UNKNOWN INDICATION
     Route: 058
     Dates: start: 20040830
  2. TEGRETOL [Concomitant]
     Indication: MIGRAINE
  3. AMBIEN [Concomitant]
  4. AZELEX [Concomitant]
  5. CLARITIN OVER THE COUNTER [Concomitant]
  6. CYMBALTA [Concomitant]
  7. DILAUDID [Concomitant]
  8. DITROPAN [Concomitant]
  9. ESTRADERM [Concomitant]
  10. FISH OIL [Concomitant]
  11. FROVA [Concomitant]
  12. LACTULOSE [Concomitant]
     Indication: CONSTIPATION
  13. MAXALT MELTING TAB [Concomitant]
  14. MIRALAX [Concomitant]
  15. NIASPAN [Concomitant]
  16. PERIACTIN [Concomitant]
  17. SALINE NASAL SPRAY [Concomitant]
  18. SOMA [Concomitant]
  19. XANAX [Concomitant]
  20. ZANTAC [Concomitant]
  21. ZOVIRAX [Concomitant]
  22. ZOVIRAX [Concomitant]

REACTIONS (6)
  - BLOOD TEST ABNORMAL [None]
  - CONSTIPATION [None]
  - FOLLICULITIS [None]
  - HEADACHE [None]
  - URTICARIA [None]
  - VISION BLURRED [None]
